FAERS Safety Report 15120282 (Version 1)
Quarter: 2018Q3

REPORT INFORMATION
  Report Type: Report from Study
  Country: US (occurrence: US)
  Receive Date: 20180709
  Receipt Date: 20180709
  Transmission Date: 20181010
  Serious: Yes (Other)
  Sender: FDA-Public Use
  Company Number: PHEH2018US026476

PATIENT
  Sex: Female
  Weight: 117.91 kg

DRUGS (2)
  1. COSENTYX [Suspect]
     Active Substance: SECUKINUMAB
     Indication: PSORIASIS
  2. COSENTYX [Suspect]
     Active Substance: SECUKINUMAB
     Indication: PSORIATIC ARTHROPATHY
     Dosage: 150 MG, QW
     Route: 058
     Dates: start: 201806

REACTIONS (6)
  - Dyspnoea [Unknown]
  - Liver injury [Unknown]
  - Pyrexia [Recovering/Resolving]
  - Oral herpes [Unknown]
  - Hepatic enzyme increased [Unknown]
  - Pain [Unknown]
